FAERS Safety Report 9693556 (Version 1)
Quarter: 2013Q4

REPORT INFORMATION
  Report Type: Spontaneous
  Country: JP (occurrence: JP)
  Receive Date: 20131118
  Receipt Date: 20131118
  Transmission Date: 20140711
  Serious: Yes (Disabling)
  Sender: FDA-Public Use
  Company Number: JP-GLAXOSMITHKLINE-B0944100A

PATIENT
  Age: 49 Year
  Sex: Male

DRUGS (5)
  1. LAMICTAL [Suspect]
     Indication: BIPOLAR DISORDER
     Route: 048
     Dates: end: 20131101
  2. LIMAS [Concomitant]
     Indication: BIPOLAR DISORDER
     Route: 048
  3. JZOLOFT [Concomitant]
     Route: 048
     Dates: end: 20131111
  4. RESTAS [Concomitant]
     Route: 048
     Dates: end: 20131111
  5. RHYTHMY [Concomitant]
     Route: 048
     Dates: end: 20131111

REACTIONS (3)
  - Rash [Not Recovered/Not Resolved]
  - Drug eruption [Unknown]
  - Skin disorder [Unknown]
